FAERS Safety Report 7360623-7 (Version None)
Quarter: 2011Q1

REPORT INFORMATION
  Report Type: 
  Country: None (occurrence: None)
  Receive Date: 20110318
  Receipt Date: 20110304
  Transmission Date: 20110831
  Serious: Yes (Hospitalization, Other)
  Sender: FDA-Public Use
  Company Number: US-BAYER-201010026NA

PATIENT
  Sex: Female
  Weight: 68.027 kg

DRUGS (3)
  1. YASMIN [Suspect]
     Indication: ACNE
     Dosage: UNK
     Route: 048
     Dates: start: 20031201, end: 20080101
  2. IBUPROFEN [Concomitant]
     Indication: PAIN
     Dosage: AS NEEDED
  3. YAZ [Suspect]
     Indication: PRODUCT USED FOR UNKNOWN INDICATION
     Route: 048

REACTIONS (6)
  - HYPERKALAEMIA [None]
  - INJURY [None]
  - GALLBLADDER CHOLESTEROLOSIS [None]
  - CHOLELITHIASIS [None]
  - GASTROENTERITIS [None]
  - CHOLECYSTECTOMY [None]
